FAERS Safety Report 10867850 (Version 1)
Quarter: 2015Q1

REPORT INFORMATION
  Report Type: Spontaneous
  Country: US (occurrence: US)
  Receive Date: 20150225
  Receipt Date: 20150225
  Transmission Date: 20150721
  Serious: No
  Sender: FDA-Public Use
  Company Number: US-MYLANLABS-2014S1012637

PATIENT
  Age: 65 Year
  Sex: Female
  Weight: 68.04 kg

DRUGS (2)
  1. CARDIAC THERAPY [Concomitant]
     Active Substance: UNSPECIFIED INGREDIENT
     Dosage: UNK
  2. ALPRAZOLAM. [Suspect]
     Active Substance: ALPRAZOLAM
     Indication: ANXIETY
     Dosage: .5 MG,PRN
     Route: 048
     Dates: start: 2013, end: 2013

REACTIONS (1)
  - Oral mucosal exfoliation [Recovered/Resolved]

NARRATIVE: CASE EVENT DATE: 2013
